FAERS Safety Report 10175147 (Version 1)
Quarter: 2014Q2

REPORT INFORMATION
  Report Type: Spontaneous
  Country: US (occurrence: US)
  Receive Date: 20140515
  Receipt Date: 20140515
  Transmission Date: 20141212
  Serious: No
  Sender: FDA-Public Use
  Company Number: US-009507513-1405USA006226

PATIENT
  Sex: Female

DRUGS (1)
  1. DR. SCHOLL^S CLEAR AWAY ONE STEP CLEAR STRIPS [Suspect]
     Indication: PRODUCT USED FOR UNKNOWN INDICATION
     Dosage: UNK, UNKNOWN
     Route: 003

REACTIONS (1)
  - No therapeutic response [Unknown]
